FAERS Safety Report 24871916 (Version 1)
Quarter: 2025Q1

REPORT INFORMATION
  Report Type: Spontaneous
  Country: US (occurrence: US)
  Receive Date: 20250122
  Receipt Date: 20250122
  Transmission Date: 20250408
  Serious: Yes (Other)
  Sender: VIIV
  Company Number: US-ViiV Healthcare-120720

PATIENT

DRUGS (4)
  1. CABENUVA [Suspect]
     Active Substance: CABOTEGRAVIR\RILPIVIRINE
     Indication: Product used for unknown indication
  2. CABENUVA [Suspect]
     Active Substance: CABOTEGRAVIR\RILPIVIRINE
  3. CABENUVA [Suspect]
     Active Substance: CABOTEGRAVIR\RILPIVIRINE
  4. BICILLIN [Suspect]
     Active Substance: PENICILLIN G BENZATHINE
     Indication: Syphilis

REACTIONS (4)
  - Surgery [Unknown]
  - Syphilis [Unknown]
  - Injection site erythema [Unknown]
  - Sensory loss [Unknown]
